APPROVED DRUG PRODUCT: LEUPROLIDE ACETATE
Active Ingredient: LEUPROLIDE ACETATE
Strength: 14MG/2.8ML (1MG/0.2ML)
Dosage Form/Route: SOLUTION;SUBCUTANEOUS
Application: A074728 | Product #001 | TE Code: AP
Applicant: SANDOZ INC
Approved: Aug 4, 1998 | RLD: No | RS: Yes | Type: RX